FAERS Safety Report 21963570 (Version 1)
Quarter: 2023Q1

REPORT INFORMATION
  Report Type: Spontaneous
  Country: US (occurrence: None)
  Receive Date: 20230206
  Receipt Date: 20230206
  Transmission Date: 20230418
  Serious: Yes (Hospitalization)
  Sender: FDA-Public Use
  Company Number: None

PATIENT
  Age: 90 Year
  Sex: Male
  Weight: 62.78 kg

DRUGS (14)
  1. ABIRATERONE ACETATE [Suspect]
     Active Substance: ABIRATERONE ACETATE
     Indication: Prostate cancer
     Dosage: FREQUENCY : DAILY;?
     Route: 048
  2. ASPIRIN [Concomitant]
     Active Substance: ASPIRIN
  3. ESCITALOPRAM [Concomitant]
     Active Substance: ESCITALOPRAM OXALATE
  4. LUPRON DEPOT [Concomitant]
     Active Substance: LEUPROLIDE ACETATE
  5. MAGNESIUM [Concomitant]
     Active Substance: MAGNESIUM
  6. MELATONIN [Concomitant]
     Active Substance: MELATONIN
  7. PANTOPRAZOLE [Concomitant]
     Active Substance: PANTOPRAZOLE
  8. PREDNISONE [Concomitant]
     Active Substance: PREDNISONE
  9. QUETIAPINE [Concomitant]
  10. SENOKOT [Concomitant]
     Active Substance: SENNOSIDES
  11. TAMSULOSIN [Concomitant]
     Active Substance: TAMSULOSIN
  12. TOPROL XL [Concomitant]
     Active Substance: METOPROLOL SUCCINATE
  13. TRAMADOL [Concomitant]
     Active Substance: TRAMADOL
  14. Uti-Stat [Concomitant]

REACTIONS (1)
  - Rectal haemorrhage [None]
